FAERS Safety Report 14910625 (Version 1)
Quarter: 2018Q2

REPORT INFORMATION
  Report Type: Not Available
  Country: US (occurrence: US)
  Receive Date: 20180517
  Receipt Date: 20180517
  Transmission Date: 20180711
  Serious: Yes (Hospitalization)
  Sender: FDA-Public Use
  Company Number: US-NEUROCRINE BIOSCIENCES INC.-2018NBI01416

PATIENT
  Age: 46 Year
  Sex: Male

DRUGS (18)
  1. FOSAMAX [Concomitant]
     Active Substance: ALENDRONATE SODIUM
  2. LIPITOR [Concomitant]
     Active Substance: ATORVASTATIN CALCIUM
  3. PROBIOTIC DAILY [Concomitant]
  4. MIRALAX [Concomitant]
     Active Substance: POLYETHYLENE GLYCOL 3350
  5. ZYRTEC [Concomitant]
     Active Substance: CETIRIZINE HYDROCHLORIDE
  6. MACRODANTIN [Concomitant]
     Active Substance: NITROFURANTOIN
  7. POTASSIUM CHLORIDE. [Concomitant]
     Active Substance: POTASSIUM CHLORIDE
  8. GAS-X [Concomitant]
     Active Substance: DIMETHICONE
  9. INGREZZA [Suspect]
     Active Substance: VALBENAZINE
     Indication: PRODUCT USED FOR UNKNOWN INDICATION
     Route: 048
     Dates: start: 20180206
  10. ZANTAC 150 MAXIMUM STRENGTH [Concomitant]
     Active Substance: RANITIDINE HYDROCHLORIDE
  11. TOPAMAX [Concomitant]
     Active Substance: TOPIRAMATE
  12. FLONASE [Concomitant]
     Active Substance: FLUTICASONE PROPIONATE
  13. CARAFATE [Concomitant]
     Active Substance: SUCRALFATE
  14. CRANBERRY FRUIT [Concomitant]
  15. MAGNESIUM CHLORIDE. [Concomitant]
     Active Substance: MAGNESIUM CHLORIDE
  16. SODIUM CHLORIDE. [Concomitant]
     Active Substance: SODIUM CHLORIDE
  17. DEPAKOTE [Concomitant]
     Active Substance: DIVALPROEX SODIUM
  18. VITAMIN D [Concomitant]
     Active Substance: CHOLECALCIFEROL

REACTIONS (1)
  - Pneumonia aspiration [Unknown]

NARRATIVE: CASE EVENT DATE: 20180416
